FAERS Safety Report 9019700 (Version 1)
Quarter: 2013Q1

REPORT INFORMATION
  Report Type: Report from Study
  Country: MA (occurrence: MA)
  Receive Date: 20130118
  Receipt Date: 20130118
  Transmission Date: 20140127
  Serious: Yes (Death)
  Sender: FDA-Public Use
  Company Number: MA-ROCHE-1180542

PATIENT
  Age: 49 Year
  Sex: Male
  Weight: 83 kg

DRUGS (4)
  1. RITUXIMAB [Suspect]
     Indication: NON-HODGKIN^S LYMPHOMA
     Route: 042
     Dates: start: 20090613, end: 20090614
  2. METHOTREXATE [Concomitant]
     Indication: NON-HODGKIN^S LYMPHOMA
     Route: 042
     Dates: start: 20090613, end: 20090614
  3. ARACYTINE [Concomitant]
     Indication: NON-HODGKIN^S LYMPHOMA
     Route: 042
     Dates: start: 20090613, end: 20090614
  4. HOLOXAN [Concomitant]
     Route: 042
     Dates: start: 20090613, end: 20090614

REACTIONS (2)
  - Renal failure [Fatal]
  - Hepatic failure [Fatal]
